FAERS Safety Report 9013338 (Version 1)
Quarter: 2013Q1

REPORT INFORMATION
  Report Type: Spontaneous
  Country: US (occurrence: US)
  Receive Date: 20130115
  Receipt Date: 20130115
  Transmission Date: 20140127
  Serious: Yes (Other)
  Sender: FDA-Public Use
  Company Number: US-MERCK-0909USA03452

PATIENT
  Age: 5 Year
  Sex: Male
  Weight: 27.22 kg

DRUGS (4)
  1. SINGULAIR [Suspect]
     Indication: MULTIPLE ALLERGIES
     Dosage: 5 MG, QD, IN THE EVENING
     Route: 048
     Dates: start: 20090301, end: 20090313
  2. CLARITIN [Concomitant]
     Dosage: UNK
  3. FLONASE [Concomitant]
     Dosage: UNK
  4. FLOVENT [Concomitant]
     Dosage: UNK

REACTIONS (3)
  - Abnormal behaviour [Unknown]
  - Mood swings [Unknown]
  - Aggression [Unknown]
